FAERS Safety Report 6971239-6 (Version None)
Quarter: 2010Q3

REPORT INFORMATION
  Report Type: 
  Country: None (occurrence: None)
  Receive Date: 20100908
  Receipt Date: 20100830
  Transmission Date: 20110219
  Serious: Yes (Hospitalization)
  Sender: FDA-Public Use
  Company Number: JP-BRISTOL-MYERS SQUIBB COMPANY-14275838

PATIENT
  Age: 40 Year
  Sex: Male

DRUGS (11)
  1. REYATAZ [Suspect]
     Indication: HIV INFECTION
     Dosage: INITIATED ON 13JAN05-21JUL05 DURATION :190 DAYS
     Route: 048
     Dates: start: 20051021, end: 20090401
  2. NORVIR [Suspect]
     Indication: HIV INFECTION
     Dosage: INITIATED ON 13JAN05-21JUL05 DURATION :190 DAYS 200MG:21OCT05-1APR09 100MG:2APR09-ONG
     Route: 048
     Dates: start: 20051021
  3. TRUVADA [Suspect]
     Indication: HIV INFECTION
     Route: 048
     Dates: start: 20061127
  4. LEXIVA [Concomitant]
     Indication: HIV INFECTION
     Dosage: TAB
     Route: 048
     Dates: start: 20090402
  5. PRAVASTATIN SODIUM [Concomitant]
     Indication: HYPERLIPIDAEMIA
     Dosage: TAB
     Route: 048
     Dates: start: 20090401
  6. SIGMART [Concomitant]
     Indication: MYOCARDIAL INFARCTION
     Dates: start: 20090401
  7. BUFFERIN [Concomitant]
     Indication: MYOCARDIAL INFARCTION
     Dosage: TAB
     Route: 048
     Dates: start: 20090401
  8. PLAVIX [Concomitant]
     Indication: MYOCARDIAL INFARCTION
     Dosage: TAB
     Route: 048
     Dates: start: 20090401
  9. OLMETEC [Concomitant]
     Indication: MYOCARDIAL INFARCTION
     Dosage: TAB
     Route: 048
     Dates: start: 20090401
  10. FAMOTIDINE [Concomitant]
     Indication: MYOCARDIAL INFARCTION
     Dosage: TAB
     Route: 048
     Dates: start: 20090401
  11. HERBESSER [Concomitant]
     Indication: MYOCARDIAL INFARCTION
     Dates: start: 20090401

REACTIONS (2)
  - ACUTE MYOCARDIAL INFARCTION [None]
  - ANGINA UNSTABLE [None]
